FAERS Safety Report 10227016 (Version 2)
Quarter: 2014Q3

REPORT INFORMATION
  Report Type: Spontaneous
  Country: US (occurrence: None)
  Receive Date: 20140606
  Receipt Date: 20140730
  Transmission Date: 20150326
  Serious: Yes (Hospitalization, Other)
  Sender: FDA-Public Use
  Company Number: UNT-2014-000152

PATIENT
  Age: 70 Year
  Sex: Female
  Weight: 51.5 kg

DRUGS (11)
  1. ACETAMINOPHEN (PARACETAMOL) [Concomitant]
     Active Substance: ACETAMINOPHEN
  2. FERROUS SULFATE [Concomitant]
     Active Substance: FERROUS SULFATE\FERROUS SULFATE, DRIED
  3. METOPROLOL TARTRATE. [Concomitant]
     Active Substance: METOPROLOL TARTRATE
  4. REVATIO (SILDENAFIL CITRATE) [Concomitant]
  5. WARFARIN (WARFARIN) [Concomitant]
     Active Substance: WARFARIN
  6. TRACLEER /01587701/ (BOSENTAN) [Concomitant]
  7. LOSARTAN [Concomitant]
     Active Substance: LOSARTAN
  8. GABAPENTIN. [Concomitant]
     Active Substance: GABAPENTIN
  9. TYVASO [Suspect]
     Active Substance: TREPROSTINIL
     Indication: PULMONARY ARTERIAL HYPERTENSION
     Route: 055
     Dates: start: 20091221, end: 20140321
  10. DIGOXIN. [Concomitant]
     Active Substance: DIGOXIN
  11. SPIRONOLACTONE. [Concomitant]
     Active Substance: SPIRONOLACTONE

REACTIONS (22)
  - Pneumonia [None]
  - Hypotension [None]
  - Pneumonia streptococcal [None]
  - Pulmonary hypertension [None]
  - Fluid overload [None]
  - Hypercapnia [None]
  - Lower gastrointestinal haemorrhage [None]
  - Atrial fibrillation [None]
  - Sepsis [None]
  - Respiratory failure [None]
  - Rash pruritic [None]
  - Dermatitis contact [None]
  - Heart disease congenital [None]
  - Right ventricular failure [None]
  - Haemorrhoidal haemorrhage [None]
  - Diarrhoea [None]
  - Normochromic normocytic anaemia [None]
  - Dysphagia [None]
  - Renal failure acute [None]
  - Atrial septal defect [None]
  - Endometrial cancer [None]
  - Abdominal pain upper [None]

NARRATIVE: CASE EVENT DATE: 20140319
